FAERS Safety Report 5907791-9 (Version None)
Quarter: 2008Q4

REPORT INFORMATION
  Report Type: 
  Country: None (occurrence: None)
  Receive Date: 20081003
  Receipt Date: 20081002
  Transmission Date: 20090506
  Serious: Yes (Death)
  Sender: FDA-Public Use
  Company Number: US-PURDUE-USA_2008_0034737

PATIENT
  Age: 39 Year
  Sex: Female
  Weight: 95 kg

DRUGS (15)
  1. OXYCONTIN [Suspect]
     Indication: PROCEDURAL PAIN
     Dosage: 20 MG, Q12H
     Dates: start: 20010319
  2. NORTRIPTYLINE HCL [Concomitant]
     Indication: BIPOLAR DISORDER
     Dosage: 25 MG, UNK
  3. DEPAKOTE [Concomitant]
     Indication: BIPOLAR DISORDER
     Dosage: 1500 MG, UNK
  4. SYNTHROID [Concomitant]
     Indication: HYPOTHYROIDISM
     Dosage: .1 MG, UNK
  5. FIORINAL                           /01000501/ [Concomitant]
  6. PROCHLORPERAZINE [Concomitant]
     Dosage: 5 MG, UNK
  7. PAXIL [Concomitant]
     Indication: BIPOLAR DISORDER
     Dosage: 20 MG, UNK
  8. ULTRAM [Concomitant]
     Dosage: 50 MG, UNK
  9. ROFECOXIB [Concomitant]
     Dosage: 12.5 MG, UNK
  10. PRILOSEC [Concomitant]
     Indication: HIATUS HERNIA
     Dosage: 20 MG, UNK
  11. FERROUS SULPHATE                   /00023503/ [Concomitant]
     Dosage: 325 MG, UNK
  12. PERCOCET [Concomitant]
     Indication: PROCEDURAL PAIN
     Dosage: 500 MG, UNK
  13. KLONOPIN [Concomitant]
     Indication: BIPOLAR DISORDER
     Dosage: 1 MG, UNK
  14. XANAX [Concomitant]
     Indication: BIPOLAR DISORDER
     Dosage: 1 MG, UNK
  15. VIOXX [Concomitant]
     Indication: MUSCULOSKELETAL PAIN
     Dosage: 12 MG, UNK

REACTIONS (1)
  - DEATH [None]
